FAERS Safety Report 9552050 (Version 3)
Quarter: 2013Q4

REPORT INFORMATION
  Report Type: Report from Study
  Country: US (occurrence: US)
  Receive Date: 20130925
  Receipt Date: 20131209
  Transmission Date: 20140711
  Serious: Yes (Other)
  Sender: FDA-Public Use
  Company Number: PHEH2013US019792

PATIENT
  Age: 57 Year
  Sex: Female

DRUGS (5)
  1. GILENYA [Suspect]
     Indication: MULTIPLE SCLEROSIS
     Dosage: 0.5 MG, QD
     Route: 048
     Dates: start: 20130703, end: 20130901
  2. TIZANIDINE [Concomitant]
     Dosage: 4 MG, TID
     Route: 048
  3. GABAPENTIN [Concomitant]
     Dosage: 600 MG, TID
     Route: 048
  4. FLUOXETINE [Concomitant]
     Dosage: 40 MG, QD
     Route: 048
  5. BUPROPION [Concomitant]
     Dosage: 75 MG, TID
     Route: 048

REACTIONS (6)
  - Lichenoid keratosis [Unknown]
  - Rash erythematous [Recovering/Resolving]
  - Scar [Unknown]
  - Hyperkeratosis [Unknown]
  - Papule [Unknown]
  - Tremor [Unknown]
